FAERS Safety Report 24136727 (Version 1)
Quarter: 2024Q3

REPORT INFORMATION
  Report Type: Spontaneous
  Country: CN (occurrence: CN)
  Receive Date: 20240725
  Receipt Date: 20240725
  Transmission Date: 20241017
  Serious: Yes (Other)
  Sender: NOVARTIS
  Company Number: CN-002147023-NVSC2024CN152355

PATIENT
  Age: 14 Year
  Sex: Male
  Weight: 79 kg

DRUGS (1)
  1. TEGRETOL [Suspect]
     Active Substance: CARBAMAZEPINE
     Indication: Pain
     Dosage: 0.2 G, BID
     Route: 048
     Dates: start: 20240713, end: 20240716

REACTIONS (3)
  - Henoch-Schonlein purpura [Recovering/Resolving]
  - Rash [Unknown]
  - Petechiae [Unknown]

NARRATIVE: CASE EVENT DATE: 20240714
